FAERS Safety Report 13792484 (Version 1)
Quarter: 2017Q3

REPORT INFORMATION
  Report Type: Spontaneous
  Country: US (occurrence: US)
  Receive Date: 20170726
  Receipt Date: 20170726
  Transmission Date: 20171127
  Serious: Yes (Other)
  Sender: FDA-Public Use
  Company Number: US-LUNDBECK-DKLU2034358

PATIENT
  Sex: Female

DRUGS (1)
  1. NORTHERA [Suspect]
     Active Substance: DROXIDOPA
     Indication: PRODUCT USED FOR UNKNOWN INDICATION
     Dosage: SCHEDULE B/ TITRATION COMPLETE
     Route: 065
     Dates: end: 20170716

REACTIONS (5)
  - Abdominal distension [Unknown]
  - Fluid retention [Unknown]
  - Carpal tunnel syndrome [Unknown]
  - Condition aggravated [Unknown]
  - Rheumatoid arthritis [Unknown]
